FAERS Safety Report 5167593-0 (Version None)
Quarter: 2006Q4

REPORT INFORMATION
  Report Type: 
  Country: None (occurrence: None)
  Receive Date: 20060918
  Receipt Date: 20060712
  Transmission Date: 20070319
  Serious: Yes (Other)
  Sender: FDA-Public Use
  Company Number: US-JNJFOC-20060703187

PATIENT
  Age: 11 Year
  Sex: Male

DRUGS (3)
  1. TOPAMAX [Suspect]
     Indication: EPILEPSY
  2. CLOBAZEPAM (CLONAZEPAM) [Suspect]
     Indication: EPILEPSY
  3. TEGRETOL [Suspect]
     Indication: EPILEPSY

REACTIONS (3)
  - CONVULSION [None]
  - DRUG INEFFECTIVE [None]
  - GAIT DISTURBANCE [None]
